FAERS Safety Report 11167108 (Version 1)
Quarter: 2015Q2

REPORT INFORMATION
  Report Type: Spontaneous
  Country: US (occurrence: US)
  Receive Date: 20150605
  Receipt Date: 20150605
  Transmission Date: 20150821
  Serious: No
  Sender: FDA-Public Use
  Company Number: US-SHIRE-US201504900

PATIENT
  Age: 15 Year
  Sex: Male
  Weight: 23.58 kg

DRUGS (1)
  1. ELAPRASE [Suspect]
     Active Substance: IDURSULFASE
     Indication: MUCOPOLYSACCHARIDOSIS II
     Dosage: 14.5 MG, 1X/WEEK
     Route: 041
     Dates: start: 20150429

REACTIONS (1)
  - Otorrhoea [Unknown]

NARRATIVE: CASE EVENT DATE: 20150519
